FAERS Safety Report 18013639 (Version 1)
Quarter: 2020Q3

REPORT INFORMATION
  Report Type: Spontaneous
  Country: US (occurrence: US)
  Receive Date: 20200711
  Receipt Date: 20200711
  Transmission Date: 20201103
  Serious: Yes (Disabling, Other)
  Sender: FDA-Public Use
  Company Number: None

PATIENT
  Age: 34 Year
  Sex: Female

DRUGS (1)
  1. EUTHYROX [Suspect]
     Active Substance: LEVOTHYROXINE SODIUM

REACTIONS (10)
  - Acne [None]
  - Depression [None]
  - Asthenia [None]
  - Confusional state [None]
  - Fatigue [None]
  - Weight increased [None]
  - Alopecia [None]
  - Skin ulcer [None]
  - Urticaria [None]
  - Onychomadesis [None]

NARRATIVE: CASE EVENT DATE: 20200704
